FAERS Safety Report 15992947 (Version 2)
Quarter: 2019Q1

REPORT INFORMATION
  Report Type: Spontaneous
  Country: KR (occurrence: KR)
  Receive Date: 20190222
  Receipt Date: 20190225
  Transmission Date: 20190418
  Serious: Yes (Hospitalization, Other)
  Sender: FDA-Public Use
  Company Number: KR-009507513-1902KOR006894

PATIENT
  Sex: Female

DRUGS (24)
  1. SODIUM CHLORIDE. [Concomitant]
     Active Substance: SODIUM CHLORIDE
     Dosage: QUANTITY: 1, DAYS: 3
     Dates: start: 20190123, end: 20190201
  2. THIAMINE HYDROCHLORIDE. [Concomitant]
     Active Substance: THIAMINE HYDROCHLORIDE
     Dosage: QUANTITY: 30, DAYS: 4
     Dates: start: 20190128, end: 20190131
  3. ENCOVER [Concomitant]
     Dosage: QUANTITY: 3. DAYS: 1
     Dates: start: 20190123
  4. LABESIN [Concomitant]
     Dosage: STRENGTH: 20 MILLIGRAM/4 MILLILITER. QUANTITY: 3, DAYS: 1
     Dates: start: 20190121
  5. SODIUM CHLORIDE. [Concomitant]
     Active Substance: SODIUM CHLORIDE
     Dosage: QUANTITY: 4, DAYS: 1
     Dates: start: 20190131
  6. TAMIPOOL [Concomitant]
     Active Substance: VITAMINS
     Dosage: QUANTITY: 2, DAYS: 1
     Dates: start: 20190128
  7. MEPERIDINE HYDROCHLORIDE. [Concomitant]
     Active Substance: MEPERIDINE HYDROCHLORIDE
     Dosage: QUANTITY: 3, DAYS: 1
     Dates: start: 20190128
  8. CHLORPHENIRAMINE MALEATE. [Concomitant]
     Active Substance: CHLORPHENIRAMINE MALEATE
     Dosage: QUANTITY: 1, DAYS: 6
     Dates: start: 20190123, end: 20190129
  9. SALICYLIC ACID. [Concomitant]
     Active Substance: SALICYLIC ACID
     Dosage: QUANTITY: 1. DAYS: 1
     Dates: start: 20190124
  10. FURTMAN [Concomitant]
     Dosage: QUANTITY: 0.2, DAYS: 1
     Dates: start: 20190128
  11. DEXTROSE (+) SODIUM CHLORIDE [Concomitant]
     Dosage: QUANTITY: 2, DAYS: 1
     Dates: start: 20190128
  12. SODIUM CHLORIDE. [Concomitant]
     Active Substance: SODIUM CHLORIDE
     Dosage: QUANTITY: 3, DAYS: 2
     Dates: start: 20190128, end: 20190131
  13. MACPERAN [Concomitant]
     Active Substance: METOCLOPRAMIDE HYDROCHLORIDE
     Dosage: QUANTITY: 1, DAYS: 1
     Dates: start: 20190121
  14. SODIUM CHLORIDE. [Concomitant]
     Active Substance: SODIUM CHLORIDE
     Dosage: QUANTITY: 5, DAYS: 1
     Dates: start: 20190129
  15. ADVANTAN [Concomitant]
     Active Substance: METHYLPREDNISOLONE ACEPONATE
     Dosage: QUANTITY: 1. DAYS: 1
     Dates: start: 20190124
  16. DEXTROSE. [Concomitant]
     Active Substance: DEXTROSE
     Dosage: STRENGTH: 5%, 50 MILLILITER. QUANTITY: 2, DAYS: 11
     Dates: start: 20190120, end: 20190131
  17. KEYTRUDA [Suspect]
     Active Substance: PEMBROLIZUMAB
     Indication: OVARIAN CANCER RECURRENT
     Dosage: UNK, EVERY 3 WEEKS
     Dates: start: 20190131
  18. NORVASC [Concomitant]
     Active Substance: AMLODIPINE BESYLATE
     Dosage: QUANTITY: 2. DAYS: 1
     Route: 048
     Dates: start: 20190122
  19. NORVASC [Concomitant]
     Active Substance: AMLODIPINE BESYLATE
     Dosage: QUANTITY: 1. DAYS: 6
     Route: 048
     Dates: start: 20190123, end: 20190130
  20. HARMONILAN [Concomitant]
     Dosage: QUANTITY: 3. DAYS: 4
     Dates: start: 20190126, end: 20190131
  21. LABESIN [Concomitant]
     Dosage: STRENGTH: 20 MILLIGRAM/4 MILLILITER. QUANTITY: 1, DAYS: 2
     Dates: start: 20190120, end: 20190130
  22. CURAN [Concomitant]
     Active Substance: RANITIDINE HYDROCHLORIDE
     Dosage: QUANTITY: 2, DAYS: 12
     Dates: start: 20190120, end: 20190131
  23. MEPERIDINE HYDROCHLORIDE. [Concomitant]
     Active Substance: MEPERIDINE HYDROCHLORIDE
     Dosage: QUANTITY: 1, DAYS: 2
     Dates: start: 20190121, end: 20190127
  24. SODIUM CHLORIDE. [Concomitant]
     Active Substance: SODIUM CHLORIDE
     Dosage: QUANTITY: 3, DAYS: 2
     Dates: start: 20190128, end: 20190130

REACTIONS (3)
  - Product use in unapproved indication [Unknown]
  - Adverse event [Unknown]
  - Infarction [Unknown]

NARRATIVE: CASE EVENT DATE: 20190131
